FAERS Safety Report 8275655 (Version 2)
Quarter: 2012Q4

REPORT INFORMATION
  Report Type: 
  Country: DE (occurrence: DE)
  Receive Date: 20111205
  Receipt Date: 20121207
  Transmission Date: 20130627
  Serious: Yes (Hospitalization)
  Sender: FDA-Public Use
  Company Number: PHHO2008DE06282

PATIENT
  Age: 58 Year
  Sex: Female
  Weight: 89 kg

DRUGS (6)
  1. EVEROLIMUS [Suspect]
     Indication: RENAL TRANSPLANT
     Dosage: 1.25 mg, BID
     Route: 048
     Dates: start: 20080730
  2. SANDIMMUN OPTORAL [Suspect]
     Indication: RENAL TRANSPLANT
     Dosage: 280 mg, UNK
     Route: 048
     Dates: start: 20080422
  3. SIMULECT [Suspect]
     Indication: RENAL TRANSPLANT
     Dosage: 20 mg, UNK
     Route: 042
     Dates: start: 20080425, end: 20080425
  4. SIMULECT [Suspect]
     Dosage: 20 mg, UNK
     Route: 042
     Dates: start: 20080429, end: 20080429
  5. MYFORTIC [Suspect]
     Indication: RENAL TRANSPLANT
     Dosage: 1440 mg, UNK
     Route: 048
     Dates: start: 20080422
  6. PREDNISONE [Suspect]
     Indication: RENAL TRANSPLANT
     Dosage: UNK
     Dates: start: 20080426

REACTIONS (5)
  - Urinary tract infection [Recovering/Resolving]
  - Kidney transplant rejection [Recovering/Resolving]
  - Renal impairment [Recovered/Resolved]
  - C-reactive protein increased [Recovering/Resolving]
  - Drug ineffective [Recovering/Resolving]
